FAERS Safety Report 13157152 (Version 1)
Quarter: 2017Q1

REPORT INFORMATION
  Report Type: Spontaneous
  Country: CA (occurrence: CA)
  Receive Date: 20170127
  Receipt Date: 20170127
  Transmission Date: 20170428
  Serious: Yes (Hospitalization)
  Sender: FDA-Public Use
  Company Number: CA-TEVA-732444ACC

PATIENT
  Age: 74 Year
  Sex: Female
  Weight: 58 kg

DRUGS (10)
  1. OLANZAPINE. [Concomitant]
     Active Substance: OLANZAPINE
  2. CLONAZEPAM. [Suspect]
     Active Substance: CLONAZEPAM
     Indication: INSOMNIA
     Route: 065
  3. VIMOVO MODIFIED-RELEASE TABLET [Concomitant]
  4. CARBOCAL D [Concomitant]
     Active Substance: CALCIUM\VITAMIN D
  5. PMS-PROCYCLIDINE [Concomitant]
  6. VITAMIN D [Concomitant]
     Active Substance: CHOLECALCIFEROL
  7. CIPRALEX [Concomitant]
     Active Substance: ESCITALOPRAM OXALATE
  8. METOPROLOL. [Concomitant]
     Active Substance: METOPROLOL
  9. HALDOL [Suspect]
     Active Substance: HALOPERIDOL
     Indication: AGITATION
     Route: 048
  10. PROLIA [Concomitant]
     Active Substance: DENOSUMAB

REACTIONS (4)
  - Off label use [Recovered/Resolved]
  - Fall [Recovered/Resolved]
  - Muscle rigidity [Recovered/Resolved]
  - Extrapyramidal disorder [Recovered/Resolved]
